FAERS Safety Report 14985451 (Version 2)
Quarter: 2018Q3

REPORT INFORMATION
  Report Type: Report from Study
  Country: US (occurrence: US)
  Receive Date: 20180607
  Receipt Date: 20180717
  Transmission Date: 20181010
  Serious: Yes (Hospitalization, Other)
  Sender: FDA-Public Use
  Company Number: US-APOPHARMA INC-2018AP009345

PATIENT
  Age: 66 Year
  Sex: Female
  Weight: 54 kg

DRUGS (22)
  1. TYVASO [Suspect]
     Active Substance: TREPROSTINIL
     Indication: PULMONARY HYPERTENSION
     Dosage: 5 DF, QID
     Route: 055
     Dates: start: 20180302, end: 201803
  2. SULFASALAZINE. [Concomitant]
     Active Substance: SULFASALAZINE
     Indication: REFRACTORY CYTOPENIA WITH UNILINEAGE DYSPLASIA
  3. PRILOSEC [Concomitant]
     Active Substance: OMEPRAZOLE MAGNESIUM
     Indication: DYSPEPSIA
     Dosage: 40 MG, QD
     Route: 048
     Dates: start: 20170216
  4. HYDROCHLOROTHIAZIDE. [Concomitant]
     Active Substance: HYDROCHLOROTHIAZIDE
     Indication: HYPERTENSION
     Dosage: UNK, UNKNOWN
     Route: 048
     Dates: start: 20120524
  5. METOPROLOL. [Concomitant]
     Active Substance: METOPROLOL
     Indication: SUPRAVENTRICULAR TACHYCARDIA
     Dosage: 25 MG, QD
     Route: 048
     Dates: start: 20120524
  6. ACTONEL [Concomitant]
     Active Substance: RISEDRONATE SODIUM
     Indication: OSTEOPOROSIS
     Dosage: 150 MG, Q.M.T.
     Route: 048
  7. FERRIPROX [Suspect]
     Active Substance: DEFERIPRONE
     Indication: SICKLE CELL ANAEMIA WITH CRISIS
     Dosage: 19 MG/KG, TID
     Route: 048
     Dates: start: 20180227
  8. MORPHINE [Concomitant]
     Active Substance: MORPHINE
     Dosage: 60 UNK, QD
     Route: 048
  9. SULFASALAZINE. [Concomitant]
     Active Substance: SULFASALAZINE
     Indication: RHEUMATOID ARTHRITIS
     Dosage: 1000 MG, BID
     Route: 048
  10. TYVASO [Suspect]
     Active Substance: TREPROSTINIL
     Dosage: 36 ?G, QID
     Route: 055
  11. ELIQUIS [Concomitant]
     Active Substance: APIXABAN
     Indication: PRODUCT USED FOR UNKNOWN INDICATION
     Route: 065
  12. TYVASO [Suspect]
     Active Substance: TREPROSTINIL
     Dosage: UNK UNK, UNKNOWN
     Route: 055
  13. FOLIC ACID. [Concomitant]
     Active Substance: FOLIC ACID
     Indication: SICKLE CELL DISEASE
     Dosage: 1 MG, QD
     Route: 048
  14. MORPHINE [Concomitant]
     Active Substance: MORPHINE
     Indication: SICKLE CELL DISEASE
     Dosage: 60 UNK, QD
     Route: 048
  15. MORPHINE [Concomitant]
     Active Substance: MORPHINE
     Dosage: 45 UNK, QD
     Route: 048
  16. SILDENAFIL. [Concomitant]
     Active Substance: SILDENAFIL
     Indication: PULMONARY HYPERTENSION
     Dosage: 60 MG, TID
     Route: 048
     Dates: start: 20171016
  17. ALLOPURINOL. [Concomitant]
     Active Substance: ALLOPURINOL
     Indication: BLOOD URIC ACID INCREASED
     Dosage: UNK, UNKNOWN
     Route: 048
  18. TYVASO [Suspect]
     Active Substance: TREPROSTINIL
     Indication: PULMONARY ARTERIAL HYPERTENSION
     Dosage: 6 DF, QID
     Route: 055
     Dates: start: 20180207
  19. TYVASO [Suspect]
     Active Substance: TREPROSTINIL
     Dosage: 30 ?G, QID
     Route: 055
  20. TYVASO [Suspect]
     Active Substance: TREPROSTINIL
     Dosage: UNK UNK, UNKNOWN
     Route: 055
  21. FUROSEMIDE. [Concomitant]
     Active Substance: FUROSEMIDE
     Indication: PULMONARY ARTERIAL HYPERTENSION
     Dosage: 20 MG, Q.O.D.
     Route: 048
     Dates: start: 20161205
  22. METOPROLOL. [Concomitant]
     Active Substance: METOPROLOL
     Indication: HYPERTENSION

REACTIONS (8)
  - Fatigue [Unknown]
  - Arthritis [Unknown]
  - Headache [Unknown]
  - Malaise [Recovered/Resolved]
  - Dry throat [Unknown]
  - Sickle cell anaemia with crisis [Recovered/Resolved]
  - Dry mouth [Not Recovered/Not Resolved]
  - Pain in jaw [Recovering/Resolving]

NARRATIVE: CASE EVENT DATE: 2018
